FAERS Safety Report 7354143-3 (Version None)
Quarter: 2011Q1

REPORT INFORMATION
  Report Type: 
  Country: None (occurrence: None)
  Receive Date: 20110309
  Receipt Date: 20110309
  Transmission Date: 20110831
  Serious: Yes (Other)
  Sender: FDA-Public Use
  Company Number: None

PATIENT
  Age: 83 Year
  Sex: Male
  Weight: 81.6475 kg

DRUGS (2)
  1. AVODART [Suspect]
     Indication: DYSURIA
     Dates: start: 20090409, end: 20100604
  2. FLOMAX [Suspect]
     Indication: DYSURIA
     Dates: start: 20091008, end: 20100604

REACTIONS (3)
  - LOSS OF CONSCIOUSNESS [None]
  - SWELLING [None]
  - BREAST PAIN [None]
